FAERS Safety Report 24288341 (Version 1)
Quarter: 2024Q3

REPORT INFORMATION
  Report Type: Report from Study
  Country: CA (occurrence: CA)
  Receive Date: 20240905
  Receipt Date: 20240905
  Transmission Date: 20241017
  Serious: Yes (Other)
  Sender: BIOGEN
  Company Number: CA-BIOGEN-2024BI01280813

PATIENT
  Age: 71 Year
  Sex: Male

DRUGS (2)
  1. DALFAMPRIDINE [Suspect]
     Active Substance: DALFAMPRIDINE
     Indication: Multiple sclerosis
     Route: 050
     Dates: start: 20120913
  2. DALFAMPRIDINE [Suspect]
     Active Substance: DALFAMPRIDINE
     Route: 050
     Dates: start: 20210503

REACTIONS (6)
  - Syncope [Recovered/Resolved]
  - Coma scale abnormal [Recovered/Resolved]
  - Hypotension [Recovered/Resolved]
  - Anisocoria [Unknown]
  - Dehydration [Recovered/Resolved]
  - Hyperhidrosis [Unknown]

NARRATIVE: CASE EVENT DATE: 20240709
